FAERS Safety Report 23990727 (Version 1)
Quarter: 2024Q2

REPORT INFORMATION
  Report Type: Spontaneous
  Country: US (occurrence: US)
  Receive Date: 20240619
  Receipt Date: 20240619
  Transmission Date: 20240716
  Serious: No
  Sender: FDA-Public Use
  Company Number: US-E2BLSMVVAL-SPO/USA/24/0008525

PATIENT
  Age: 89 Year
  Sex: Male

DRUGS (1)
  1. LENALIDOMIDE [Suspect]
     Active Substance: LENALIDOMIDE
     Indication: Product used for unknown indication

REACTIONS (8)
  - Feeling abnormal [Unknown]
  - Heart rate increased [Unknown]
  - Decreased appetite [Unknown]
  - Insomnia [Unknown]
  - Asthenia [Unknown]
  - Therapy interrupted [Unknown]
  - Nervousness [Unknown]
  - Unevaluable event [Unknown]
